FAERS Safety Report 4384833-6 (Version None)
Quarter: 2004Q2

REPORT INFORMATION
  Report Type: 
  Country: None (occurrence: None)
  Receive Date: 20040623
  Receipt Date: 20040526
  Transmission Date: 20050107
  Serious: Yes (Death)
  Sender: FDA-Public Use
  Company Number: 2004S1001538

PATIENT
  Age: 64 Year
  Sex: Female

DRUGS (3)
  1. CLOZAPINE [Suspect]
     Indication: DELUSION
     Dosage: 150MG Q HS, ORAL
     Route: 048
     Dates: start: 20030703, end: 20040416
  2. CLOZAPINE [Suspect]
     Indication: DEMENTIA
     Dosage: 150MG Q HS, ORAL
     Route: 048
     Dates: start: 20030703, end: 20040416
  3. CLOZAPINE [Suspect]
     Indication: SCHIZOPHRENIA
     Dosage: 150MG Q HS, ORAL
     Route: 048
     Dates: start: 20030703, end: 20040416

REACTIONS (1)
  - DEATH [None]
